FAERS Safety Report 9653818 (Version 1)
Quarter: 2013Q4

REPORT INFORMATION
  Report Type: Spontaneous
  Country: US (occurrence: US)
  Receive Date: 20131029
  Receipt Date: 20131029
  Transmission Date: 20140711
  Serious: No
  Sender: FDA-Public Use
  Company Number: US-BIOGENIDEC-2013BI081081

PATIENT
  Age: 58 Year
  Sex: Male

DRUGS (6)
  1. TECFIDERA [Suspect]
     Indication: MULTIPLE SCLEROSIS
     Route: 048
     Dates: start: 20130517
  2. STOOL SOFTENER [Concomitant]
     Indication: PRODUCT USED FOR UNKNOWN INDICATION
  3. LAXATIVE [Concomitant]
     Indication: PRODUCT USED FOR UNKNOWN INDICATION
  4. VITAMIN D-3 [Concomitant]
     Indication: PRODUCT USED FOR UNKNOWN INDICATION
  5. METOPROLOL TARTRATE [Concomitant]
     Indication: PRODUCT USED FOR UNKNOWN INDICATION
  6. PRAVASTATIN SODIUM [Concomitant]
     Indication: PRODUCT USED FOR UNKNOWN INDICATION

REACTIONS (1)
  - Breast mass [Unknown]
